FAERS Safety Report 8127989-1 (Version None)
Quarter: 2012Q1

REPORT INFORMATION
  Report Type: 
  Country: None (occurrence: None)
  Receive Date: 20120210
  Receipt Date: 20120201
  Transmission Date: 20120608
  Serious: Yes (Other)
  Sender: FDA-Public Use
  Company Number: DE-ASTRAZENECA-2010SE23901

PATIENT
  Age: 23110 Day
  Sex: Female
  Weight: 47 kg

DRUGS (8)
  1. IRESSA [Suspect]
     Indication: NON-SMALL CELL LUNG CANCER
     Route: 048
     Dates: start: 20100118
  2. NOVALGIN [Concomitant]
     Route: 048
  3. DURUGESIC PFLASTER [Concomitant]
  4. ASTONIN H [Concomitant]
     Route: 048
  5. NYSTATIN [Concomitant]
     Dosage: 1 PIPETTE 6 TIMES A DAY
     Route: 053
  6. MOVICOL BENTEL [Concomitant]
     Route: 048
  7. VOMACUR [Concomitant]
     Route: 048
  8. PANTOPRAZOLE [Concomitant]
     Route: 048

REACTIONS (2)
  - PULMONARY EMBOLISM [None]
  - THROMBOSIS [None]
